FAERS Safety Report 5169069-3 (Version None)
Quarter: 2006Q4

REPORT INFORMATION
  Report Type: 
  Country: None (occurrence: None)
  Receive Date: 20061201
  Receipt Date: 20061120
  Transmission Date: 20070319
  Serious: Yes (Other)
  Sender: FDA-Public Use
  Company Number: 2006143450

PATIENT
  Age: 46 Year
  Sex: 0
  Weight: 81.6475 kg

DRUGS (1)
  1. ROGAINE [Suspect]
     Indication: ALOPECIA
     Dosage: 1 ML TWICE DAILY,TOPICAL
     Route: 061
     Dates: start: 20040101

REACTIONS (1)
  - BLADDER CANCER [None]
